FAERS Safety Report 8836719 (Version 2)
Quarter: 2012Q4

REPORT INFORMATION
  Report Type: 
  Country: IT (occurrence: IT)
  Receive Date: 20121012
  Receipt Date: 20121107
  Transmission Date: 20130627
  Serious: Yes (Hospitalization)
  Sender: FDA-Public Use
  Company Number: IT-BAYER-2012-107077

PATIENT
  Age: 72 Year
  Sex: Female

DRUGS (3)
  1. CIPROXIN [Suspect]
     Indication: CYSTITIS
     Dosage: 250 mg, ONCE
     Route: 048
     Dates: start: 20120606, end: 20120606
  2. AZARGA [Concomitant]
     Dosage: UNK
     Dates: start: 20120520, end: 20120606
  3. TRAVATAN [Concomitant]
     Dosage: UNK
     Dates: start: 20120520, end: 20120606

REACTIONS (3)
  - Dermatitis allergic [Recovered/Resolved]
  - Burning sensation [Recovered/Resolved]
  - Throat irritation [Recovered/Resolved]
